FAERS Safety Report 7766265-3 (Version None)
Quarter: 2011Q3

REPORT INFORMATION
  Report Type: 
  Country: None (occurrence: None)
  Receive Date: 20110922
  Receipt Date: 20110920
  Transmission Date: 20111222
  Serious: Yes (Hospitalization)
  Sender: FDA-Public Use
  Company Number: BR-BRISTOL-MYERS SQUIBB COMPANY-15945058

PATIENT
  Age: 72 Year
  Sex: Female

DRUGS (16)
  1. OMEPRAZOLE [Concomitant]
     Dosage: 30JUL
     Dates: start: 20110705, end: 20110809
  2. DIAZEPAM [Concomitant]
     Dates: start: 19960101
  3. CIPROFLOXACIN [Concomitant]
     Dosage: 29JUL-6AUG11
     Dates: start: 20110723, end: 20110806
  4. SALINE [Concomitant]
     Dosage: SALINE SOLUTION
     Dates: start: 20110729, end: 20110809
  5. MORPHINE [Concomitant]
     Dates: start: 20110729, end: 20110809
  6. DRAMIN [Concomitant]
     Dosage: DRAMIN B6DL
     Dates: start: 20110729, end: 20110809
  7. SERTRALINE HYDROCHLORIDE [Concomitant]
     Dates: start: 20110705
  8. DOCUSATE SODIUM [Concomitant]
     Dates: start: 20110705
  9. METFORMIN HCL [Concomitant]
     Dates: start: 20080101
  10. ALPRAZOLAM [Concomitant]
     Dates: start: 19960101
  11. DIMOR [Concomitant]
     Dates: start: 20110728
  12. IPILIMUMAB [Suspect]
     Indication: MALIGNANT MELANOMA
     Route: 042
     Dates: start: 20110712, end: 20110712
  13. CETOPROFEN [Concomitant]
     Dates: start: 20110729, end: 20110802
  14. BROMOPRIDE [Concomitant]
     Dates: start: 20110705
  15. BISACODYL [Concomitant]
     Dates: start: 20110705
  16. CLINDAMYCIN [Concomitant]
     Dosage: 29JUL-6AUG11
     Dates: start: 20110723, end: 20110806

REACTIONS (1)
  - METASTASES TO CENTRAL NERVOUS SYSTEM [None]
